FAERS Safety Report 5343294-0 (Version None)
Quarter: 2007Q2

REPORT INFORMATION
  Report Type: 
  Country: None (occurrence: None)
  Receive Date: 20070502
  Receipt Date: 20060811
  Transmission Date: 20071010
  Serious: Yes (Hospitalization)
  Sender: FDA-Public Use
  Company Number: PHEH2006US10326

PATIENT
  Age: 69 Year
  Sex: Female

DRUGS (1)
  1. LOTREL [Suspect]
     Indication: HYPERTENSION
     Dosage: ORAL
     Route: 048
     Dates: start: 20060101, end: 20060701

REACTIONS (4)
  - AURICULAR SWELLING [None]
  - DYSPHAGIA [None]
  - SWELLING FACE [None]
  - SWOLLEN TONGUE [None]
